FAERS Safety Report 8446599-X (Version None)
Quarter: 2012Q2

REPORT INFORMATION
  Report Type: 
  Country: None (occurrence: None)
  Receive Date: 20120619
  Receipt Date: 20120614
  Transmission Date: 20120825
  Serious: Yes (Hospitalization)
  Sender: FDA-Public Use
  Company Number: US-AMGEN-USASP2012037171

PATIENT
  Age: 48 Year
  Sex: Female

DRUGS (2)
  1. ENBREL [Suspect]
     Indication: RHEUMATOID ARTHRITIS
     Dosage: 50 MG, QWK
     Dates: start: 20000101
  2. HUMIRA [Concomitant]
     Dosage: UNK

REACTIONS (10)
  - KNEE ARTHROPLASTY [None]
  - ARTHRALGIA [None]
  - DRUG INEFFECTIVE [None]
  - CONTUSION [None]
  - DIABETES MELLITUS [None]
  - STRESS [None]
  - RHEUMATOID ARTHRITIS [None]
  - ULCER [None]
  - RASH [None]
  - KIDNEY INFECTION [None]
